FAERS Safety Report 8484255 (Version 2)
Quarter: 2013Q1

REPORT INFORMATION
  Report Type: Spontaneous
  Country: GB (occurrence: None)
  Receive Date: 20120323
  Receipt Date: 20121227
  Transmission Date: 20140127
  Serious: Yes (Other)
  Sender: FDA-Public Use
  Company Number: AUR-APL-2012-01427

PATIENT
  Age: 30 Year
  Sex: Male
  Weight: 78.64 kg

DRUGS (2)
  1. CIPROFLOXACIN [Suspect]
     Dosage: 1000 MG (500 MG, 2 IN 1 D)
     Route: 048
     Dates: start: 20120217, end: 20120229
  2. DOXYCYCLINE [Concomitant]

REACTIONS (1)
  - OPTIC NEURITIS [None]
